FAERS Safety Report 4270932-6 (Version None)
Quarter: 2004Q1

REPORT INFORMATION
  Report Type: 
  Country: None (occurrence: None)
  Receive Date: 20040113
  Receipt Date: 20030924
  Transmission Date: 20041129
  Serious: Yes (Death, Other)
  Sender: FDA-Public Use
  Company Number: 2003IC000622

PATIENT
  Age: 75 Year
  Sex: Female

DRUGS (3)
  1. FLUOROURACIL [Suspect]
     Indication: LARGE INTESTINE CARCINOMA
     Dosage: 750 MG; INTRAVENOUS
     Route: 042
     Dates: start: 20030501, end: 20030605
  2. CALCIUM LEVOFOLINATE [Concomitant]
  3. LENDORM [Concomitant]

REACTIONS (14)
  - CANDIDIASIS [None]
  - DEHYDRATION [None]
  - DIARRHOEA [None]
  - DISSEMINATED INTRAVASCULAR COAGULATION [None]
  - GASTROINTESTINAL HAEMORRHAGE [None]
  - HYPERGLYCAEMIA [None]
  - LEUKOPENIA [None]
  - MALNUTRITION [None]
  - PAIN [None]
  - PIGMENTATION DISORDER [None]
  - PLEURAL EFFUSION [None]
  - STOMACH DISCOMFORT [None]
  - STOMATITIS [None]
  - THROMBOCYTOPENIA [None]
